FAERS Safety Report 4333456-3 (Version None)
Quarter: 2004Q1

REPORT INFORMATION
  Report Type: 
  Country: None (occurrence: None)
  Receive Date: 20040329
  Receipt Date: 20040113
  Transmission Date: 20041129
  Serious: No
  Sender: FDA-Public Use
  Company Number: 04P-163-0247005-00

PATIENT
  Age: 77 Year
  Sex: Female

DRUGS (12)
  1. HUMIRA [Suspect]
     Indication: RHEUMATOID ARTHRITIS
     Dosage: 40 MG, 1 IN 2 WK, SUBCUTANEOUS
     Route: 058
     Dates: start: 20030826
  2. FOLIC ACID [Concomitant]
  3. ASCORBIC ACID [Concomitant]
  4. TOCOPHEROL CONCENTRATE CAP [Concomitant]
  5. MULTI-VITAMINS [Concomitant]
  6. METHOTREXATE [Concomitant]
  7. NAPROXEN SODIUM [Concomitant]
  8. TRAMADOL HCL [Concomitant]
  9. FENTANYL [Concomitant]
  10. RISEDRONATE SODIUM [Concomitant]
  11. PREDNISONE [Concomitant]
  12. LEVOTHYROXINE SODIUM [Concomitant]

REACTIONS (2)
  - DYSPHAGIA [None]
  - VOMITING [None]
